FAERS Safety Report 25871571 (Version 1)
Quarter: 2025Q4

REPORT INFORMATION
  Report Type: Spontaneous
  Country: US (occurrence: US)
  Receive Date: 20251001
  Receipt Date: 20251001
  Transmission Date: 20260117
  Serious: No
  Sender: MERCK SHARP & DOHME LLC
  Company Number: US-009507513-2334874

PATIENT
  Age: 70 Year
  Sex: Male

DRUGS (9)
  1. PREVYMIS [Suspect]
     Active Substance: LETERMOVIR
     Indication: Lung transplant
     Dosage: STRENGTH: 480 MG.
     Route: 050
     Dates: start: 202406
  2. CYCLOSPORINE [Concomitant]
     Active Substance: CYCLOSPORINE
  3. PREDNISONE [Concomitant]
     Active Substance: PREDNISONE
  4. BACTRIM [Concomitant]
     Active Substance: SULFAMETHOXAZOLE\TRIMETHOPRIM
  5. ERYTHROMYCIN [Concomitant]
     Active Substance: ERYTHROMYCIN
  6. VITAMIN B [Concomitant]
     Active Substance: VITAMIN B
  7. VITAMIN D [Concomitant]
     Active Substance: VITAMIN D NOS
  8. VITAMIN C [Concomitant]
     Active Substance: ASCORBIC ACID
  9. VITAMINS [Concomitant]
     Active Substance: VITAMINS

REACTIONS (3)
  - Product use in unapproved indication [Unknown]
  - No adverse event [Unknown]
  - Wrong technique in product usage process [Unknown]

NARRATIVE: CASE EVENT DATE: 20240601
